FAERS Safety Report 21185056 (Version 1)
Quarter: 2022Q3

REPORT INFORMATION
  Report Type: Report from Study
  Country: CN (occurrence: CN)
  Receive Date: 20220808
  Receipt Date: 20220808
  Transmission Date: 20221026
  Serious: No
  Sender: FDA-Public Use
  Company Number: CN-BAXTER-2021BAX031992

PATIENT
  Age: 66 Year
  Sex: Male
  Weight: 60 kg

DRUGS (26)
  1. AMINO ACIDS\DEXTROSE\ELECTROLYTES NOS\SOYBEAN OIL [Suspect]
     Active Substance: AMINO ACIDS\DEXTROSE\ELECTROLYTES NOS\SOYBEAN OIL
     Indication: Product used for unknown indication
     Dosage: ONCE TIME 1500 ML INFUSION RATE OF 3 ML/KG/H
     Route: 065
     Dates: start: 20210309, end: 20210309
  2. AMINO ACIDS\DEXTROSE\ELECTROLYTES NOS\SOYBEAN OIL [Suspect]
     Active Substance: AMINO ACIDS\DEXTROSE\ELECTROLYTES NOS\SOYBEAN OIL
     Dosage: ONCE TIME 1500 ML INFUSION RATE OF 3 ML/KG/H
     Route: 065
     Dates: start: 20210310, end: 20210310
  3. AMINO ACIDS\DEXTROSE\ELECTROLYTES NOS\SOYBEAN OIL [Suspect]
     Active Substance: AMINO ACIDS\DEXTROSE\ELECTROLYTES NOS\SOYBEAN OIL
     Dosage: ONCE TIME 1500 ML INFUSION RATE OF 3 ML/KG/H
     Route: 065
     Dates: start: 20210311, end: 20210311
  4. DEXTROSE [Concomitant]
     Active Substance: DEXTROSE
     Indication: Medication dilution
     Dosage: 100 ML ONCE TIME
     Route: 065
     Dates: start: 20210309, end: 20210309
  5. DEXTROSE [Concomitant]
     Active Substance: DEXTROSE
     Dosage: 100 ML ONCE TIME
     Route: 065
     Dates: start: 20210310, end: 20210310
  6. DEXTROSE [Concomitant]
     Active Substance: DEXTROSE
     Dosage: 100ML ONCE TIME
     Route: 065
     Dates: start: 20210311, end: 20210311
  7. NADROPARIN CALCIUM [Concomitant]
     Active Substance: NADROPARIN CALCIUM
     Indication: Anticoagulant therapy
     Dosage: 4100 IU (INTERNATIONAL UNIT),QD INJECTION
     Route: 058
     Dates: start: 20210226, end: 20210321
  8. VITAMINS [Concomitant]
     Active Substance: VITAMINS
     Indication: Vitamin supplementation
     Dosage: ONCE TIME 1 POTION PERIPHERAL VEIN/CENTRAL VEIN
     Route: 042
     Dates: start: 20210308, end: 20210321
  9. PHLOROGLUCINOL [Concomitant]
     Active Substance: PHLOROGLUCINOL
     Indication: Tetany
     Dosage: 120 MG QD PERIPHERAL VEIN/CENTRAL VEIN
     Route: 042
     Dates: start: 20210308, end: 20210321
  10. PHLOROGLUCINOL [Concomitant]
     Active Substance: PHLOROGLUCINOL
     Indication: Pain management
  11. Long chain fat emulsion Injection (OO) [Concomitant]
     Indication: Nutritional supplementation
     Dosage: 250 ML ONCE DAILY, PERIPHERAL VEIN/CENTRAL VEIN
     Route: 042
     Dates: start: 20210309, end: 20210321
  12. ALBUMIN HUMAN [Concomitant]
     Active Substance: ALBUMIN HUMAN
     Indication: Nutritional supplementation
     Dosage: 20 G ONCE DAILY, PERIPHERAL VEIN/CENTRAL VEIN
     Route: 042
     Dates: start: 20210310, end: 20210313
  13. CEFTAZIDIME [Concomitant]
     Active Substance: CEFTAZIDIME
     Indication: Abdominal pain upper
     Dosage: 3 G TWICE DAILY, PERIPHERAL VEIN/CENTRAL VEIN
     Route: 042
     Dates: start: 20210312, end: 20210317
  14. VITAMINS NOS [Concomitant]
     Active Substance: VITAMINS
     Indication: Medication dilution
     Dosage: ONCE TIME 1 POTION
     Route: 065
     Dates: start: 20210309, end: 20210309
  15. UNSPECIFIED INGREDIENT [Concomitant]
     Active Substance: UNSPECIFIED INGREDIENT
     Indication: Medication dilution
     Dosage: 60 ML ONCE TIME
     Route: 065
     Dates: start: 20210309, end: 20210309
  16. UNSPECIFIED INGREDIENT [Concomitant]
     Active Substance: UNSPECIFIED INGREDIENT
     Dosage: 70 ML ONCE TIME
     Route: 065
     Dates: start: 20210310, end: 20210310
  17. UNSPECIFIED INGREDIENT [Concomitant]
     Active Substance: UNSPECIFIED INGREDIENT
     Dosage: 70 ML ONCE TIME
     Route: 065
     Dates: start: 20210311, end: 20210311
  18. WATER [Concomitant]
     Active Substance: WATER
     Indication: Medication dilution
     Dosage: 10 ML ONCE TIME
     Route: 065
     Dates: start: 20210309, end: 20210309
  19. WATER [Concomitant]
     Active Substance: WATER
     Dosage: 10 ML ONCE TIME
     Route: 065
     Dates: start: 20210310, end: 20210310
  20. WATER [Concomitant]
     Active Substance: WATER
     Dosage: 10 ML ONCE TIME
     Route: 065
     Dates: start: 20210311, end: 20210311
  21. INSULIN NOS [Concomitant]
     Active Substance: INSULIN NOS
     Indication: Medication dilution
     Dosage: 24 IU ONCE TIME
     Route: 065
     Dates: start: 20210309, end: 20210309
  22. AMMONIUM GLYCYRRHIZATE\CYSTEINE [Concomitant]
     Active Substance: AMMONIUM GLYCYRRHIZATE\CYSTEINE
     Indication: Prophylaxis
     Dosage: ONCE DAILY 250 ML, INTRAVENOUS (PERIPHERAL VEIN/CENTRAL VEIN)
     Route: 042
     Dates: start: 20210309, end: 20210321
  23. ENTERAL NUTRITIONAL EMULSION (TPF-T) [Concomitant]
     Indication: Nutritional supplementation
     Dosage: ONCE DAILY 500 ML, NASAL FEEDING
     Route: 045
     Dates: start: 20210311, end: 20210320
  24. Lipid Emulsion(10%)/Amino Acids(15) and Glucose(20%) [Concomitant]
     Indication: Nutritional supplementation
     Dosage: ONCE DAILY 1000 ML, INTRAVENOUS (PERIPHERAL VEIN/CENTRAL VEIN)
     Route: 042
     Dates: start: 20210318, end: 20210321
  25. INSULIN NOS [Concomitant]
     Active Substance: INSULIN NOS
     Indication: Medication dilution
     Dosage: 24 IU ONCE TIME
     Dates: start: 20210310, end: 20210310
  26. INSULIN NOS [Concomitant]
     Active Substance: INSULIN NOS
     Dosage: 24 IU ONCE TIME
     Dates: start: 20210311, end: 20210311

REACTIONS (1)
  - Pyrexia [Recovered/Resolved]

NARRATIVE: CASE EVENT DATE: 20210310
